FAERS Safety Report 18769115 (Version 1)
Quarter: 2021Q1

REPORT INFORMATION
  Report Type: Spontaneous
  Country: US (occurrence: US)
  Receive Date: 20210121
  Receipt Date: 20210121
  Transmission Date: 20210419
  Serious: No
  Sender: FDA-Public Use
  Company Number: US-TAKEDA-2021TUS002794

PATIENT
  Sex: Female
  Weight: 71.66 kg

DRUGS (24)
  1. HEPARIN [Concomitant]
     Active Substance: HEPARIN SODIUM
  2. OMEPRAZOLE ABBOTT [Concomitant]
     Active Substance: OMEPRAZOLE
  3. GENERLAC [Concomitant]
     Active Substance: LACTULOSE
  4. XTAMPZA ER [Concomitant]
     Active Substance: OXYCODONE
  5. POTASSIUM [Concomitant]
     Active Substance: POTASSIUM
  6. FISH OIL [Concomitant]
     Active Substance: FISH OIL
  7. BUDESONIDE. [Concomitant]
     Active Substance: BUDESONIDE
  8. SODIUM CHLORIDE. [Concomitant]
     Active Substance: SODIUM CHLORIDE
  9. PROPRANOLOL 3MM [Concomitant]
  10. LEVOTHYROXINE NA [Concomitant]
     Active Substance: LEVOTHYROXINE SODIUM
  11. ZOLPIDEM [Concomitant]
     Active Substance: ZOLPIDEM TARTRATE
  12. OXYCODONE [Concomitant]
     Active Substance: OXYCODONE
  13. GAMMAGARD LIQUID [Suspect]
     Active Substance: HUMAN IMMUNOGLOBULIN G
     Indication: IMMUNODEFICIENCY COMMON VARIABLE
     Dosage: 25 MILLIGRAM, 4/WEEK
     Route: 042
     Dates: start: 20201230
  14. ACETAMINOPHEN. [Concomitant]
     Active Substance: ACETAMINOPHEN
  15. DIPHENHYDRAMINE. [Concomitant]
     Active Substance: DIPHENHYDRAMINE
  16. AMITRIPTYLINE [Concomitant]
     Active Substance: AMITRIPTYLINE
  17. MIRALAX [Concomitant]
     Active Substance: POLYETHYLENE GLYCOL 3350
  18. PROBIOTIC 10 [Concomitant]
     Active Substance: DIETARY SUPPLEMENT\PROBIOTICS
  19. DARIFENACIN HYDROBROMIDE. [Concomitant]
     Active Substance: DARIFENACIN HYDROBROMIDE
  20. GAMMAGARD LIQUID [Suspect]
     Active Substance: HUMAN IMMUNOGLOBULIN G
     Indication: OPTIC NEURITIS
  21. LIDOCAINE ACCORD [Concomitant]
  22. EPINEPHRINE. [Concomitant]
     Active Substance: EPINEPHRINE
  23. BACLOFEN. [Concomitant]
     Active Substance: BACLOFEN
  24. DULOXETINE. [Concomitant]
     Active Substance: DULOXETINE

REACTIONS (2)
  - Chills [Unknown]
  - Injection site paraesthesia [Unknown]
